FAERS Safety Report 5141075-4 (Version None)
Quarter: 2006Q4

REPORT INFORMATION
  Report Type: 
  Country: None (occurrence: None)
  Receive Date: 20061026
  Receipt Date: 20061019
  Transmission Date: 20070319
  Serious: Yes (Hospitalization)
  Sender: FDA-Public Use
  Company Number: MEDI-0004304

PATIENT
  Age: 4 Month
  Sex: 0

DRUGS (1)
  1. SYNAGIS [Suspect]
     Indication: ANTIVIRAL PROPHYLAXIS
     Dosage: 100 MG, 1 IN 30 D, INTRAMUSCULAR
     Route: 030
     Dates: start: 20051014, end: 20051014

REACTIONS (7)
  - BRONCHIAL OBSTRUCTION [None]
  - BRONCHITIS [None]
  - CARDIAC FAILURE [None]
  - CONVULSION [None]
  - CORONA VIRUS INFECTION [None]
  - HYPERTHERMIA [None]
  - URINARY TRACT INFECTION [None]
